FAERS Safety Report 16161603 (Version 1)
Quarter: 2019Q2

REPORT INFORMATION
  Report Type: Spontaneous
  Country: IT (occurrence: IT)
  Receive Date: 20190405
  Receipt Date: 20190405
  Transmission Date: 20190711
  Serious: Yes (Hospitalization)
  Sender: FDA-Public Use
  Company Number: IT-ACCORD-118515

PATIENT
  Age: 75 Year
  Sex: Female

DRUGS (1)
  1. CLOZAPINE. [Suspect]
     Active Substance: CLOZAPINE
     Route: 048
     Dates: start: 20190129, end: 20190129

REACTIONS (3)
  - Sopor [Recovering/Resolving]
  - Medication error [Unknown]
  - Dry mouth [Recovering/Resolving]

NARRATIVE: CASE EVENT DATE: 20190129
